FAERS Safety Report 8445040-0 (Version None)
Quarter: 2012Q2

REPORT INFORMATION
  Report Type: 
  Country: None (occurrence: None)
  Receive Date: 20120618
  Receipt Date: 20120609
  Transmission Date: 20120825
  Serious: Yes (Hospitalization)
  Sender: FDA-Public Use
  Company Number: US-ROCHE-1077695

PATIENT
  Age: 63 Year
  Sex: Female
  Weight: 68.13 kg

DRUGS (3)
  1. PACLITAXEL [Suspect]
     Indication: FALLOPIAN TUBE CANCER
     Dosage: (CYCLE 1 -6)
     Route: 042
     Dates: start: 20110609
  2. AVASTIN [Suspect]
     Indication: FALLOPIAN TUBE CANCER
     Dosage: LAST ADMINISTERED DOSE: 30/MAR/2012, CYCLE 2
     Route: 042
  3. CARBOPLATIN [Suspect]
     Indication: FALLOPIAN TUBE CANCER
     Dosage: AUC 6, ON DAY1 (CYCLE 1 -6)
     Route: 042
     Dates: start: 20110609

REACTIONS (1)
  - SMALL INTESTINAL OBSTRUCTION [None]
